FAERS Safety Report 25814587 (Version 1)
Quarter: 2025Q3

REPORT INFORMATION
  Report Type: Spontaneous
  Country: US (occurrence: US)
  Receive Date: 20250917
  Receipt Date: 20250917
  Transmission Date: 20251020
  Serious: Yes (Other)
  Sender: MERCK SHARP & DOHME LLC
  Company Number: US-009507513-2329905

PATIENT
  Age: 63 Year
  Sex: Male

DRUGS (1)
  1. KEYTRUDA [Suspect]
     Active Substance: PEMBROLIZUMAB
     Indication: Renal cancer
     Route: 065

REACTIONS (5)
  - Pneumonia [Recovered/Resolved]
  - Tooth loss [Recovering/Resolving]
  - Pathological tooth fracture [Recovering/Resolving]
  - Illness [Recovering/Resolving]
  - Injury [Recovered/Resolved]
